FAERS Safety Report 8367199-6 (Version None)
Quarter: 2012Q2

REPORT INFORMATION
  Report Type: 
  Country: None (occurrence: None)
  Receive Date: 20120517
  Receipt Date: 20120426
  Transmission Date: 20120825
  Serious: Yes (Life-Threatening, Hospitalization, Other)
  Sender: FDA-Public Use
  Company Number: PHHO2012PT006400

PATIENT
  Sex: Male
  Weight: 78 kg

DRUGS (5)
  1. AMITRIPTYLINE HCL [Suspect]
     Dosage: 50 MG, QD
     Dates: start: 20120207, end: 20120426
  2. TRAZODONE HCL [Suspect]
     Dosage: 150 MG, QD
     Dates: start: 20080722, end: 20120426
  3. ESCITALOPRAM [Suspect]
     Dosage: 10 MG, QD
     Dates: start: 20080722, end: 20120406
  4. PREGABALIN [Suspect]
     Dosage: 75 MG, BID
     Dates: start: 20120228, end: 20120406
  5. GILENYA [Suspect]
     Indication: MULTIPLE SCLEROSIS
     Dosage: UNK
     Route: 048
     Dates: start: 20110426, end: 20120406

REACTIONS (6)
  - TRANSAMINASES INCREASED [None]
  - THROMBOCYTOPENIA [None]
  - RESPIRATORY TRACT INFECTION [None]
  - RENAL IMPAIRMENT [None]
  - PYREXIA [None]
  - JAUNDICE [None]
